FAERS Safety Report 6216947-X (Version None)
Quarter: 2009Q2

REPORT INFORMATION
  Report Type: 
  Country: None (occurrence: None)
  Receive Date: 20090604
  Receipt Date: 20090522
  Transmission Date: 20091009
  Serious: Yes (Death)
  Sender: FDA-Public Use
  Company Number: OPER20090077

PATIENT
  Age: 52 Year
  Sex: Male
  Weight: 141.9759 kg

DRUGS (7)
  1. OPANA ER [Suspect]
     Indication: RHEUMATOID ARTHRITIS
     Dosage: 30 M G, Q12H. PER ORAL
     Route: 048
     Dates: start: 20090202, end: 20090201
  2. FLUOXETINE [Suspect]
     Indication: DEPRESSION
     Dosage: 40 MG, DAILY, PER ORAL
     Route: 048
     Dates: start: 20071008, end: 20090201
  3. LISINOPRIL AND HYDROCHLOROTHIAZIDE [Concomitant]
  4. NABUMETONE [Concomitant]
  5. LORATADINE [Concomitant]
  6. ANDRODERM [Concomitant]
  7. FOLIC ACID [Concomitant]

REACTIONS (6)
  - ARTERIOSCLEROSIS CORONARY ARTERY [None]
  - GASTRIC FLUID ANALYSIS ABNORMAL [None]
  - HEPATIC CONGESTION [None]
  - HYPERTENSIVE HEART DISEASE [None]
  - PAIN [None]
  - PULMONARY CONGESTION [None]
